FAERS Safety Report 5568258-3 (Version None)
Quarter: 2007Q4

REPORT INFORMATION
  Report Type: 
  Country: None (occurrence: None)
  Receive Date: 20071220
  Receipt Date: 20071212
  Transmission Date: 20080405
  Serious: Yes (Hospitalization, Other)
  Sender: FDA-Public Use
  Company Number: ES-JNJFOC-20070805984

PATIENT
  Age: 43 Year
  Sex: Male

DRUGS (3)
  1. REMICADE [Suspect]
     Route: 042
  2. REMICADE [Suspect]
     Indication: RHEUMATOID ARTHRITIS
     Route: 042
  3. CORTICOIDS [Concomitant]
     Indication: RHEUMATOID ARTHRITIS

REACTIONS (3)
  - NERVE COMPRESSION [None]
  - PARESIS [None]
  - SYNOVITIS [None]
